FAERS Safety Report 11568558 (Version 2)
Quarter: 2015Q4

REPORT INFORMATION
  Report Type: Spontaneous
  Country: US (occurrence: US)
  Receive Date: 20150929
  Receipt Date: 20151008
  Transmission Date: 20160304
  Serious: Yes (Hospitalization, Other)
  Sender: FDA-Public Use
  Company Number: US-SUN PHARMACEUTICAL INDUSTRIES LTD-2015US-103782

PATIENT
  Age: 31 Year
  Sex: Male

DRUGS (2)
  1. LORAZEPAM. [Suspect]
     Active Substance: LORAZEPAM
     Indication: PRODUCT USED FOR UNKNOWN INDICATION
     Dosage: 6-8G, SINGLE
     Route: 048
  2. VALPROIC ACID. [Suspect]
     Active Substance: VALPROIC ACID
     Indication: PRODUCT USED FOR UNKNOWN INDICATION
     Dosage: 10-23.3 G, SINGLE
     Route: 048

REACTIONS (6)
  - Toxicity to various agents [Recovering/Resolving]
  - Ammonia increased [Recovering/Resolving]
  - Suicide attempt [Recovering/Resolving]
  - Somnolence [Recovering/Resolving]
  - Drug level increased [Recovering/Resolving]
  - Intentional overdose [Recovering/Resolving]
